FAERS Safety Report 4470190-3 (Version None)
Quarter: 2004Q3

REPORT INFORMATION
  Report Type: 
  Country: None (occurrence: None)
  Receive Date: 20040910
  Receipt Date: 20040716
  Transmission Date: 20050211
  Serious: No
  Sender: FDA-Public Use
  Company Number: 2004-00218

PATIENT
  Age: 68 Year
  Sex: Female
  Weight: 57.6 kg

DRUGS (8)
  1. VELCADE [Suspect]
     Indication: MULTIPLE MYELOMA
     Dosage: SEE IMAGE
     Route: 040
     Dates: start: 20040405, end: 20040517
  2. VELCADE [Suspect]
     Indication: MULTIPLE MYELOMA
     Dosage: SEE IMAGE
     Route: 040
     Dates: start: 20040517, end: 20040609
  3. VELCADE [Suspect]
     Indication: MULTIPLE MYELOMA
     Dosage: SEE IMAGE
     Route: 040
     Dates: start: 20040609, end: 20040616
  4. VELCADE [Suspect]
     Indication: MULTIPLE MYELOMA
     Dosage: SEE IMAGE
     Route: 040
     Dates: start: 20040616
  5. ESTRADIOL [Concomitant]
  6. NORVASC [Concomitant]
  7. CALCIUM (CALCIUM) [Concomitant]
  8. ZANTAC [Concomitant]

REACTIONS (3)
  - FATIGUE [None]
  - NEUROPATHY PERIPHERAL [None]
  - RASH ERYTHEMATOUS [None]
